FAERS Safety Report 23149778 (Version 1)
Quarter: 2023Q4

REPORT INFORMATION
  Report Type: Report from Study
  Country: US (occurrence: US)
  Receive Date: 20231106
  Receipt Date: 20231106
  Transmission Date: 20240110
  Serious: Yes (Hospitalization)
  Sender: FDA-Public Use
  Company Number: US-002147023-NVSC2023US233244

PATIENT
  Sex: Male

DRUGS (3)
  1. JADENU [Suspect]
     Active Substance: DEFERASIROX
     Indication: Thalassaemia sickle cell
     Dosage: UNK
     Route: 065
  2. JADENU [Suspect]
     Active Substance: DEFERASIROX
     Dosage: 540 MG, QD
     Route: 048
  3. EXJADE [Suspect]
     Active Substance: DEFERASIROX
     Indication: Product used for unknown indication
     Dosage: UNK
     Route: 065

REACTIONS (2)
  - Sickle cell anaemia with crisis [Unknown]
  - Condition aggravated [Recovered/Resolved with Sequelae]
